FAERS Safety Report 9868108 (Version 3)
Quarter: 2014Q1

REPORT INFORMATION
  Report Type: Spontaneous
  Country: JP (occurrence: JP)
  Receive Date: 20140204
  Receipt Date: 20140324
  Transmission Date: 20141002
  Serious: Yes (Hospitalization)
  Sender: FDA-Public Use
  Company Number: JP-GLAXOSMITHKLINE-B0965159A

PATIENT
  Age: 44 Year
  Sex: Female

DRUGS (1)
  1. IMIGRAN STATDOSE [Suspect]
     Indication: PRODUCT USED FOR UNKNOWN INDICATION
     Route: 058

REACTIONS (3)
  - Cerebellar infarction [Recovering/Resolving]
  - Cerebellar ischaemia [Recovering/Resolving]
  - Vertigo [Recovering/Resolving]
